FAERS Safety Report 6385786-1 (Version None)
Quarter: 2009Q4

REPORT INFORMATION
  Report Type: 
  Country: None (occurrence: None)
  Receive Date: 20091002
  Receipt Date: 20080929
  Transmission Date: 20100525
  Serious: Yes (Other)
  Sender: FDA-Public Use
  Company Number: US-ASTRAZENECA-2008UW21004

PATIENT
  Age: 54 Year
  Sex: Female
  Weight: 60.8 kg

DRUGS (5)
  1. ARIMIDEX [Suspect]
     Indication: BREAST CANCER
     Route: 048
     Dates: start: 20040401
  2. LIPITOR [Concomitant]
  3. CALCIUM [Concomitant]
  4. VITAMIN D [Concomitant]
  5. VITAMIN E [Concomitant]

REACTIONS (4)
  - BONE DENSITY DECREASED [None]
  - FALL [None]
  - MIGRAINE [None]
  - MULTIPLE FRACTURES [None]
